FAERS Safety Report 24687475 (Version 2)
Quarter: 2024Q4

REPORT INFORMATION
  Report Type: Report from Study
  Country: CN (occurrence: CN)
  Receive Date: 20241202
  Receipt Date: 20241217
  Transmission Date: 20250114
  Serious: Yes (Hospitalization, Other)
  Sender: PFIZER
  Company Number: CN-TAKEDA-2023TUS077475

PATIENT
  Age: 57 Year
  Sex: Male
  Weight: 68 kg

DRUGS (8)
  1. BRENTUXIMAB VEDOTIN [Suspect]
     Active Substance: BRENTUXIMAB VEDOTIN
     Indication: Hodgkin^s disease
     Dosage: 82 MG, CYCLIC ( Q2WEEKS)
     Route: 041
     Dates: start: 20230726, end: 20231227
  2. EPIRUBICIN HYDROCHLORIDE [Suspect]
     Active Substance: EPIRUBICIN HYDROCHLORIDE
     Indication: Hodgkin^s disease
     Dosage: 60 MG, 1X/DAY
     Route: 042
     Dates: start: 20230726, end: 20230726
  3. VINDESINE [Suspect]
     Active Substance: VINDESINE
     Indication: Hodgkin^s disease
     Dosage: 4 MG, 1X/DAY
     Route: 042
     Dates: start: 20230726, end: 20230726
  4. DACARBAZINE [Suspect]
     Active Substance: DACARBAZINE
     Indication: Hodgkin^s disease
     Dosage: 686 MG, 1X/DAY
     Route: 042
     Dates: start: 20230726, end: 20230726
  5. PALONOSETRON HYDROCHLORIDE [Concomitant]
     Active Substance: PALONOSETRON HYDROCHLORIDE
     Indication: Antiemetic supportive care
     Dosage: 0.5 MG, 1X/DAY
     Route: 048
     Dates: start: 20230906
  6. LEUCOGEN [SARGRAMOSTIM] [Concomitant]
     Indication: White blood cell count increased
     Dosage: 20 MG, 3X/DAY
     Route: 048
     Dates: start: 20230726
  7. CEFACLOR [Concomitant]
     Active Substance: CEFACLOR
     Indication: Infection prophylaxis
     Dosage: 375 MG, 1X/DAY
     Route: 048
     Dates: start: 20230726
  8. ACYCLOVIR [Concomitant]
     Active Substance: ACYCLOVIR
     Indication: Antiviral prophylaxis
     Dosage: 0.4 G, 2X/DAY
     Route: 048
     Dates: start: 20230726

REACTIONS (4)
  - Pneumonia [Recovered/Resolved]
  - Drug eruption [Recovered/Resolved]
  - Off label use [Unknown]
  - Product use issue [Unknown]

NARRATIVE: CASE EVENT DATE: 20230726
